FAERS Safety Report 20836852 (Version 1)
Quarter: 2022Q2

REPORT INFORMATION
  Report Type: Spontaneous
  Country: US (occurrence: None)
  Receive Date: 20220517
  Receipt Date: 20220517
  Transmission Date: 20220721
  Serious: No
  Sender: FDA-Public Use
  Company Number: US-Hikma Pharmaceuticals USA Inc.-US-H14001-21-04525

PATIENT
  Age: 15 Year
  Sex: Female

DRUGS (2)
  1. TESTOSTERONE ENANTHATE [Suspect]
     Active Substance: TESTOSTERONE ENANTHATE
     Indication: Transgender hormonal therapy
     Dosage: UNKNOWN
     Route: 065
  2. TESTOSTERONE CYPIONATE [Suspect]
     Active Substance: TESTOSTERONE CYPIONATE
     Indication: Transgender hormonal therapy
     Dosage: UNKNOWN
     Route: 065

REACTIONS (1)
  - Rash [Unknown]
